FAERS Safety Report 24758323 (Version 1)
Quarter: 2024Q4

REPORT INFORMATION
  Report Type: Other
  Country: CA (occurrence: CA)
  Receive Date: 20241220
  Receipt Date: 20241220
  Transmission Date: 20250115
  Serious: Yes (Life-Threatening)
  Sender: B BRAUN
  Company Number: CA-B.Braun Medical Inc.-2167484

PATIENT
  Age: 29 Year
  Sex: Female

DRUGS (3)
  1. SODIUM CHLORIDE [Suspect]
     Active Substance: SODIUM CHLORIDE
  2. INSULIN NOS [Concomitant]
     Active Substance: INSULIN NOS
  3. Azthromycin [Concomitant]

REACTIONS (2)
  - Pelvic inflammatory disease [Recovered/Resolved]
  - Septic shock [Recovered/Resolved]
